FAERS Safety Report 16851359 (Version 1)
Quarter: 2019Q3

REPORT INFORMATION
  Report Type: Spontaneous
  Country: US (occurrence: US)
  Receive Date: 20190925
  Receipt Date: 20190925
  Transmission Date: 20191005
  Serious: Yes (Hospitalization, Other)
  Sender: FDA-Public Use
  Company Number: US-NXDC-GLE-0046-2019

PATIENT

DRUGS (3)
  1. GLEOLAN [Suspect]
     Active Substance: AMINOLEVULINIC ACID HYDROCHLORIDE
     Indication: GLIOBLASTOMA
     Dates: start: 20190815, end: 20190815
  2. KEPPRA [Concomitant]
     Active Substance: LEVETIRACETAM
  3. DILANTIN [Concomitant]
     Active Substance: PHENYTOIN

REACTIONS (4)
  - Blood creatinine increased [Unknown]
  - Deep vein thrombosis [Unknown]
  - Gamma-glutamyltransferase increased [Unknown]
  - Seizure [Unknown]
